FAERS Safety Report 7550110-5 (Version None)
Quarter: 2011Q2

REPORT INFORMATION
  Report Type: 
  Country: None (occurrence: None)
  Receive Date: 20110615
  Receipt Date: 20100930
  Transmission Date: 20111010
  Serious: Yes (Other)
  Sender: FDA-Public Use
  Company Number: CA-ASTRAZENECA-2010SE42809

PATIENT
  Age: 79 Year
  Sex: Male

DRUGS (3)
  1. IRESSA [Interacting]
     Route: 048
     Dates: start: 20101018
  2. IRESSA [Suspect]
     Indication: NON-SMALL CELL LUNG CANCER
     Route: 048
     Dates: start: 20100801, end: 20100910
  3. CHINESE HERB [Interacting]
     Route: 065

REACTIONS (2)
  - LIVER FUNCTION TEST ABNORMAL [None]
  - DRUG INTERACTION [None]
